FAERS Safety Report 4849656-X (Version None)
Quarter: 2005Q4

REPORT INFORMATION
  Report Type: 
  Country: None (occurrence: None)
  Receive Date: 20051207
  Receipt Date: 20051123
  Transmission Date: 20060501
  Serious: Yes (Other)
  Sender: FDA-Public Use
  Company Number: 219926

PATIENT
  Age: 68 Year
  Sex: Female

DRUGS (1)
  1. HERCEPTIN [Suspect]
     Indication: BREAST CANCER
     Dosage: 6 + 8MG/KG, Q3W, INTRAVENOUS
     Route: 042
     Dates: start: 20050818, end: 20051109

REACTIONS (1)
  - BUNDLE BRANCH BLOCK LEFT [None]
